FAERS Safety Report 25741773 (Version 1)
Quarter: 2025Q3

REPORT INFORMATION
  Report Type: Spontaneous
  Country: US (occurrence: US)
  Receive Date: 20250829
  Receipt Date: 20250829
  Transmission Date: 20251020
  Serious: No
  Sender: MYLAN
  Company Number: US-MYLANLABS-2025M1072343

PATIENT
  Age: 35 Year
  Sex: Male

DRUGS (4)
  1. CORTIFOAM [Suspect]
     Active Substance: HYDROCORTISONE ACETATE
     Indication: Haemorrhoids
     Dosage: 10 PERCENT, QD (ONCE A DAY)
     Dates: start: 20250807
  2. CORTIFOAM [Suspect]
     Active Substance: HYDROCORTISONE ACETATE
     Dosage: 10 PERCENT, QD (ONCE A DAY)
     Route: 065
     Dates: start: 20250807
  3. CORTIFOAM [Suspect]
     Active Substance: HYDROCORTISONE ACETATE
     Dosage: 10 PERCENT, QD (ONCE A DAY)
     Route: 065
     Dates: start: 20250807
  4. CORTIFOAM [Suspect]
     Active Substance: HYDROCORTISONE ACETATE
     Dosage: 10 PERCENT, QD (ONCE A DAY)
     Dates: start: 20250807

REACTIONS (2)
  - Off label use [Unknown]
  - Device leakage [Unknown]

NARRATIVE: CASE EVENT DATE: 20250807
